FAERS Safety Report 8151415-X (Version None)
Quarter: 2012Q1

REPORT INFORMATION
  Report Type: 
  Country: None (occurrence: None)
  Receive Date: 20120220
  Receipt Date: 20120208
  Transmission Date: 20120608
  Serious: Yes (Hospitalization)
  Sender: FDA-Public Use
  Company Number: AT-ROCHE-1033482

PATIENT
  Age: 76 Year
  Sex: Female

DRUGS (11)
  1. ACTOS [Concomitant]
  2. AMIODARONE HYDROCHLORIDE [Concomitant]
  3. AQUAPHORIL [Concomitant]
  4. CITALOPRAM HYDROBROMIDE [Concomitant]
  5. XELODA [Suspect]
     Indication: COLORECTAL CANCER METASTATIC
     Route: 048
     Dates: start: 20110922, end: 20120111
  6. AMARYL [Concomitant]
  7. METOPROLOL TARTRATE [Concomitant]
  8. NORVASC [Concomitant]
  9. LEVOTHYROXINE SODIUM [Concomitant]
  10. LASIX [Concomitant]
  11. THEOPHYLLINE [Concomitant]

REACTIONS (4)
  - PALMAR-PLANTAR ERYTHRODYSAESTHESIA SYNDROME [None]
  - PAIN IN EXTREMITY [None]
  - SKIN NECROSIS [None]
  - BLISTER [None]
